FAERS Safety Report 5813606-X (Version None)
Quarter: 2008Q3

REPORT INFORMATION
  Report Type: 
  Country: None (occurrence: None)
  Receive Date: 20080717
  Receipt Date: 20080715
  Transmission Date: 20090109
  Serious: Yes (Other)
  Sender: FDA-Public Use
  Company Number: ZA-JNJFOC-20080703405

PATIENT

DRUGS (1)
  1. TAVANIC [Suspect]
     Indication: LIVER ABSCESS
     Route: 042

REACTIONS (1)
  - HEPATIC HAEMORRHAGE [None]
